FAERS Safety Report 15376048 (Version 1)
Quarter: 2018Q3

REPORT INFORMATION
  Report Type: Spontaneous
  Country: MT (occurrence: MT)
  Receive Date: 20180912
  Receipt Date: 20180912
  Transmission Date: 20181010
  Serious: Yes (Life-Threatening, Hospitalization)
  Sender: FDA-Public Use
  Company Number: MT-NOVAST LABORATORIES, LTD-MT-2018NOV000312

PATIENT
  Age: 31 Year
  Sex: Female

DRUGS (5)
  1. ALCOHOL. [Suspect]
     Active Substance: ALCOHOL
     Indication: PRODUCT USED FOR UNKNOWN INDICATION
     Dosage: 1 LITER, UNK
  2. IBUPROFEN. [Suspect]
     Active Substance: IBUPROFEN
     Indication: PRODUCT USED FOR UNKNOWN INDICATION
     Dosage: 2.74 G, UNK
  3. AMLODIPINE [Suspect]
     Active Substance: AMLODIPINE BESYLATE
     Indication: PRODUCT USED FOR UNKNOWN INDICATION
     Dosage: 260 MG, UNK
  4. PERINDOPRIL [Suspect]
     Active Substance: PERINDOPRIL
     Indication: PRODUCT USED FOR UNKNOWN INDICATION
     Dosage: 104 MG, UNK
  5. BUTALBITAL, ACETAMINOPHEN, AND CAFFEINE [Suspect]
     Active Substance: ACETAMINOPHEN\BUTALBITAL\CAFFEINE
     Indication: PRODUCT USED FOR UNKNOWN INDICATION
     Dosage: 12 G PARACETAMOL/480 MG CAFFEINE

REACTIONS (5)
  - Tachypnoea [Recovering/Resolving]
  - Intentional overdose [Unknown]
  - Calcium ionised decreased [Unknown]
  - Coma scale abnormal [Recovering/Resolving]
  - Metabolic acidosis [Recovering/Resolving]
